FAERS Safety Report 5759087-6 (Version None)
Quarter: 2008Q2

REPORT INFORMATION
  Report Type: 
  Country: None (occurrence: None)
  Receive Date: 20080604
  Receipt Date: 20080523
  Transmission Date: 20081010
  Serious: Yes (Hospitalization)
  Sender: FDA-Public Use
  Company Number: FR-ELI_LILLY_AND_COMPANY-FR200805004739

PATIENT
  Sex: Female

DRUGS (5)
  1. PROZAC [Suspect]
     Route: 048
     Dates: start: 20071126, end: 20071217
  2. HYTACAND [Concomitant]
     Route: 048
     Dates: end: 20071217
  3. PANTOPRAZOLE SODIUM [Concomitant]
     Route: 048
  4. LEXOMIL [Concomitant]
     Route: 048
  5. FENOFIBRATE [Concomitant]
     Route: 048

REACTIONS (3)
  - GENERAL PHYSICAL HEALTH DETERIORATION [None]
  - HYPONATRAEMIA [None]
  - VISUAL ACUITY REDUCED [None]
